FAERS Safety Report 5075772-6 (Version None)
Quarter: 2006Q3

REPORT INFORMATION
  Report Type: 
  Country: None (occurrence: None)
  Receive Date: 20060809
  Receipt Date: 20051215
  Transmission Date: 20061208
  Serious: No
  Sender: FDA-Public Use
  Company Number: US-AMGEN-KDL161903

PATIENT
  Age: 73 Year
  Sex: Female
  Weight: 94 kg

DRUGS (8)
  1. PROCRIT [Suspect]
     Indication: RENAL FAILURE CHRONIC
     Route: 058
     Dates: start: 20041116, end: 20051130
  2. COUMADIN [Concomitant]
     Dates: end: 20051201
  3. FOLIC ACID [Concomitant]
  4. LASIX [Concomitant]
  5. COREG [Concomitant]
  6. AMIODARONE HCL [Concomitant]
  7. ACTOS [Concomitant]
  8. ZAROXOLYN [Concomitant]

REACTIONS (1)
  - THERAPEUTIC RESPONSE DECREASED [None]
